FAERS Safety Report 24888608 (Version 1)
Quarter: 2025Q1

REPORT INFORMATION
  Report Type: Spontaneous
  Country: GR (occurrence: GR)
  Receive Date: 20250127
  Receipt Date: 20250127
  Transmission Date: 20250409
  Serious: Yes (Hospitalization)
  Sender: ROCHE
  Company Number: None

PATIENT
  Age: 70 Year
  Sex: Female

DRUGS (1)
  1. RITUXIMAB [Suspect]
     Active Substance: RITUXIMAB
     Indication: Dermatomyositis
     Route: 040

REACTIONS (4)
  - COVID-19 [Recovering/Resolving]
  - Coinfection [Recovering/Resolving]
  - Influenza [Recovering/Resolving]
  - Off label use [Unknown]
